FAERS Safety Report 5812905-5 (Version None)
Quarter: 2008Q3

REPORT INFORMATION
  Report Type: 
  Country: None (occurrence: None)
  Receive Date: 20080717
  Receipt Date: 20070629
  Transmission Date: 20090109
  Serious: No
  Sender: FDA-Public Use
  Company Number: A0660584A

PATIENT
  Sex: Female

DRUGS (1)
  1. NICORETTE [Suspect]
     Indication: DRUG USE FOR UNKNOWN INDICATION

REACTIONS (2)
  - INCREASED TENDENCY TO BRUISE [None]
  - INTENTIONAL DRUG MISUSE [None]
